FAERS Safety Report 6216438-6 (Version None)
Quarter: 2009Q2

REPORT INFORMATION
  Report Type: 
  Country: None (occurrence: None)
  Receive Date: 20090605
  Receipt Date: 20090528
  Transmission Date: 20091009
  Serious: Yes (Other)
  Sender: FDA-Public Use
  Company Number: GB-BAYER-200911944BNE

PATIENT
  Age: 50 Year
  Sex: Male
  Weight: 150 kg

DRUGS (1)
  1. MAGNEVIST [Suspect]
     Indication: NUCLEAR MAGNETIC RESONANCE IMAGING

REACTIONS (7)
  - FLUSHING [None]
  - NAUSEA [None]
  - OXYGEN SATURATION DECREASED [None]
  - PARAESTHESIA [None]
  - RETCHING [None]
  - TACHYCARDIA [None]
  - VOMITING [None]
